FAERS Safety Report 8904762 (Version 1)
Quarter: 2012Q4

REPORT INFORMATION
  Report Type: 
  Country: US (occurrence: US)
  Receive Date: 20121113
  Receipt Date: 20121113
  Transmission Date: 20130627
  Serious: No
  Sender: FDA-Public Use
  Company Number: US-009507513-1211USA000055

PATIENT
  Age: 40 Year
  Sex: Male
  Weight: 86.17 kg

DRUGS (4)
  1. REMERON [Suspect]
     Indication: DEPRESSION
     Dosage: 15 mg, hs
     Dates: start: 2002, end: 2009
  2. REMERON [Suspect]
     Dosage: 15 mg, hs
     Dates: start: 201205, end: 201207
  3. REMERON [Suspect]
     Dosage: 30 mg, hs
     Dates: start: 201207, end: 201210
  4. SEROQUEL [Suspect]

REACTIONS (11)
  - Hypertension [Unknown]
  - Blood cholesterol increased [Unknown]
  - Fluid retention [Unknown]
  - Haemorrhoids [Not Recovered/Not Resolved]
  - Constipation [Not Recovered/Not Resolved]
  - Hunger [Unknown]
  - Increased appetite [Unknown]
  - Weight increased [Recovering/Resolving]
  - Somnolence [Unknown]
  - Asthenia [Unknown]
  - Weight increased [Recovering/Resolving]
